FAERS Safety Report 8190631-8 (Version None)
Quarter: 2012Q1

REPORT INFORMATION
  Report Type: 
  Country: None (occurrence: None)
  Receive Date: 20120307
  Receipt Date: 20120301
  Transmission Date: 20120608
  Serious: Yes (Hospitalization, Other)
  Sender: FDA-Public Use
  Company Number: DE-ACTELION-A-US2008-21932

PATIENT

DRUGS (1)
  1. VENTAVIS [Suspect]
     Indication: PULMONARY ARTERIAL HYPERTENSION
     Dosage: 2.5 UG, OD
     Route: 055
     Dates: start: 20080828, end: 20080911

REACTIONS (3)
  - PLEURAL EFFUSION [None]
  - ENDOCARDITIS [None]
  - AORTIC VALVE REPLACEMENT [None]
